FAERS Safety Report 25511068 (Version 1)
Quarter: 2025Q3

REPORT INFORMATION
  Report Type: Spontaneous
  Country: US (occurrence: US)
  Receive Date: 20250703
  Receipt Date: 20250703
  Transmission Date: 20251021
  Serious: No
  Sender: RADIUS PHARM
  Company Number: US-RADIUS HEALTH INC.-2024US006301

PATIENT
  Sex: Female

DRUGS (1)
  1. TYMLOS [Suspect]
     Active Substance: ABALOPARATIDE
     Indication: Osteoporosis
     Route: 065
     Dates: start: 202402, end: 2024

REACTIONS (18)
  - Intentional dose omission [Unknown]
  - Alopecia [Unknown]
  - Decreased appetite [Unknown]
  - Weight decreased [Unknown]
  - Photophobia [Unknown]
  - Blepharospasm [Unknown]
  - Product administered at inappropriate site [Unknown]
  - Dry eye [Unknown]
  - Vision blurred [Unknown]
  - Palpitations [Recovered/Resolved]
  - Chest discomfort [Recovered/Resolved]
  - Heart rate increased [Unknown]
  - Anxiety [Unknown]
  - Asthenia [Unknown]
  - Fatigue [Unknown]
  - Abdominal pain [Unknown]
  - Eye pain [Unknown]
  - Onychoclasis [Unknown]

NARRATIVE: CASE EVENT DATE: 20240501
